FAERS Safety Report 25390707 (Version 1)
Quarter: 2025Q2

REPORT INFORMATION
  Report Type: Spontaneous
  Country: US (occurrence: None)
  Receive Date: 20250603
  Receipt Date: 20250603
  Transmission Date: 20250716
  Serious: No
  Sender: FDA-CTU
  Company Number: None

PATIENT
  Age: 66 Year
  Sex: Female
  Weight: 68.715 kg

DRUGS (9)
  1. SEMAGLUTIDE [Suspect]
     Active Substance: SEMAGLUTIDE
     Indication: Weight decreased
     Dosage: OTHER QUANTITY : .7 INJECTION(S);?OTHER FREQUENCY : WEEKLY;?
     Route: 058
  2. SEMAGLUTIDE [Suspect]
     Active Substance: SEMAGLUTIDE
  3. DEVICE [Concomitant]
     Active Substance: DEVICE
  4. LOSARTAN [Concomitant]
     Active Substance: LOSARTAN
  5. AMLODIPINE [Concomitant]
     Active Substance: AMLODIPINE BESYLATE
  6. COENZYME Q10 [Concomitant]
     Active Substance: DIETARY SUPPLEMENT\UBIDECARENONE
  7. VITAMINS [Concomitant]
     Active Substance: VITAMINS
  8. VITAMIN D3 [Concomitant]
     Active Substance: CHOLECALCIFEROL
  9. CALCIUM [Concomitant]
     Active Substance: CALCIUM

REACTIONS (3)
  - Weight increased [None]
  - Drug ineffective [None]
  - Product quality issue [None]

NARRATIVE: CASE EVENT DATE: 20250501
